FAERS Safety Report 10524780 (Version 1)
Quarter: 2014Q4

REPORT INFORMATION
  Report Type: Spontaneous
  Country: US (occurrence: US)
  Receive Date: 20141017
  Receipt Date: 20141017
  Transmission Date: 20150528
  Serious: No
  Sender: FDA-Public Use
  Company Number: US-PFIZER INC-2014284192

PATIENT
  Age: 33 Year
  Sex: Male
  Weight: 70.3 kg

DRUGS (1)
  1. VIAGRA [Suspect]
     Active Substance: SILDENAFIL CITRATE
     Dosage: UNK
     Dates: start: 201410

REACTIONS (5)
  - Male orgasmic disorder [Recovering/Resolving]
  - Intentional product misuse [Unknown]
  - Ejaculation disorder [Recovering/Resolving]
  - Premature ejaculation [Recovering/Resolving]
  - Erection increased [Recovering/Resolving]

NARRATIVE: CASE EVENT DATE: 201410
